FAERS Safety Report 9797906 (Version 1)
Quarter: 2014Q1

REPORT INFORMATION
  Report Type: Spontaneous
  Country: US (occurrence: US)
  Receive Date: 20140106
  Receipt Date: 20140106
  Transmission Date: 20141002
  Serious: No
  Sender: FDA-Public Use
  Company Number: US-009507513-1401USA000632

PATIENT
  Sex: 0

DRUGS (1)
  1. PROVENTIL [Suspect]
     Dosage: 90 MICROGRAM, 2-4 PUFFS, EVERY 4 HOURS AS NEEDED
     Route: 055
     Dates: start: 20131219

REACTIONS (3)
  - Product odour abnormal [Unknown]
  - Overdose [Unknown]
  - No adverse event [Unknown]
